FAERS Safety Report 9923115 (Version 1)
Quarter: 2014Q1

REPORT INFORMATION
  Report Type: Spontaneous
  Country: US (occurrence: US)
  Receive Date: 20140225
  Receipt Date: 20140225
  Transmission Date: 20141002
  Serious: No
  Sender: FDA-Public Use
  Company Number: US-AMGEN-USASP2013069137

PATIENT
  Age: 56 Year
  Sex: Female

DRUGS (1)
  1. ENBREL [Suspect]
     Indication: PSORIASIS
     Dosage: 50 MG, QWK
     Route: 065
     Dates: start: 20130412

REACTIONS (8)
  - Musculoskeletal pain [Not Recovered/Not Resolved]
  - Diarrhoea [Recovered/Resolved]
  - Injection site bruising [Recovered/Resolved]
  - Feeling abnormal [Recovered/Resolved]
  - Gastrointestinal infection [Recovered/Resolved]
  - Psoriasis [Not Recovered/Not Resolved]
  - Upper respiratory tract infection [Recovered/Resolved]
  - Injection site pain [Not Recovered/Not Resolved]
